FAERS Safety Report 7980326-5 (Version None)
Quarter: 2011Q4

REPORT INFORMATION
  Report Type: 
  Country: None (occurrence: None)
  Receive Date: 20111212
  Receipt Date: 20111129
  Transmission Date: 20120403
  Serious: Yes (Other)
  Sender: FDA-Public Use
  Company Number: 1000025334

PATIENT
  Age: 48 Year
  Sex: Female

DRUGS (16)
  1. NORCO (HYDROCODONE, ACETAMINOPHEN) (HYDROCODONE, ACETAMINOPHEN) [Concomitant]
  2. PRISTIQ (DESVENLAFAXINE SUCCINATE) (DESVENLAFAXINE SUCCINATE) [Concomitant]
  3. ALPRAZOLAM [Concomitant]
  4. METOLAZONE (METOLAZONE) (METOLAZONE) [Concomitant]
  5. NEXIUM [Concomitant]
  6. NORTRIPTAN (NORTRIPTAN) (NORTRIPTAN) [Concomitant]
  7. SINGULAIR (MONTELUKAST SODIUM) (MONTELUKAST SODIUM) [Concomitant]
  8. PREMPRO (PROVELLA-14) (PROVELLA-14) [Concomitant]
  9. POTASSIUM (POTASSIUM) (POTASSIUM) [Concomitant]
  10. GABAPENTIN [Concomitant]
  11. TORSEMIDE (TORASEMIDE) (TORASEMIDE) [Concomitant]
  12. SAVELLA [Suspect]
     Indication: FIBROMYALGIA
     Dosage: 50 MG (50 MG, 1 IN 1 D), ORAL
     Route: 048
     Dates: start: 20111101, end: 20111104
  13. OMNARIS (CICLESONIDE ) (CICLESONIDE) [Concomitant]
  14. VITAMIN B12 (VITAMIN B12) (VITAMIN B12) [Concomitant]
  15. OXYCONTIN (OXYCODONE HYDROCHLORIDE) (OXYCODONE HYDROCHLORIDE) [Concomitant]
  16. ATENOLOL [Concomitant]

REACTIONS (2)
  - VISUAL ACUITY REDUCED [None]
  - VISION BLURRED [None]
